FAERS Safety Report 16999899 (Version 1)
Quarter: 2019Q4

REPORT INFORMATION
  Report Type: Spontaneous
  Country: US (occurrence: US)
  Receive Date: 20191106
  Receipt Date: 20191106
  Transmission Date: 20200122
  Serious: No
  Sender: FDA-Public Use
  Company Number: US-VERTEX PHARMACEUTICALS-2019-005768

PATIENT
  Age: 50 Year
  Sex: Female

DRUGS (1)
  1. SYMDEKO [Suspect]
     Active Substance: IVACAFTOR\TEZACAFTOR
     Indication: CYSTIC FIBROSIS
     Dosage: 100MG TEZACAFTOR/150MG IVACAFTOR AM; 150MG IVACAFTOR PM TABLETS
     Route: 048
     Dates: start: 20190311, end: 20191009

REACTIONS (6)
  - Rash [Recovering/Resolving]
  - Dry skin [Unknown]
  - Dry mouth [Unknown]
  - Constipation [Recovered/Resolved]
  - Discomfort [Recovered/Resolved]
  - Pneumonia [Recovering/Resolving]

NARRATIVE: CASE EVENT DATE: 2019
